FAERS Safety Report 5490578-1 (Version None)
Quarter: 2007Q4

REPORT INFORMATION
  Report Type: 
  Country: None (occurrence: None)
  Receive Date: 20071019
  Receipt Date: 20071008
  Transmission Date: 20080405
  Serious: Yes (Hospitalization)
  Sender: FDA-Public Use
  Company Number: DE-SOLVAY-00307034313

PATIENT
  Age: 800 Month
  Sex: Male
  Weight: 126 kg

DRUGS (3)
  1. BISOPROLOL FUMARATE [Concomitant]
     Indication: ILL-DEFINED DISORDER
     Dosage: DAILY DOSE:  UNKNOWN
     Route: 065
  2. TESTOGEL 25 MG [Suspect]
     Indication: PRIMARY HYPOGONADISM
     Dosage: DAILY DOSE: 25 MILLIGRAM(S)
     Route: 062
     Dates: start: 20070321, end: 20070525
  3. ORAL ANTIDIABETICS [Concomitant]
     Indication: ILL-DEFINED DISORDER
     Dosage: DAILY DOSE:  UNKNOWN
     Route: 048

REACTIONS (4)
  - CARDIAC FAILURE [None]
  - COR PULMONALE [None]
  - DIABETES MELLITUS [None]
  - OEDEMA [None]
